FAERS Safety Report 9306222 (Version 3)
Quarter: 2013Q3

REPORT INFORMATION
  Report Type: Report from Study
  Country: GR (occurrence: GR)
  Receive Date: 20130523
  Receipt Date: 20130708
  Transmission Date: 20140515
  Serious: Yes (Life-Threatening, Hospitalization)
  Sender: FDA-Public Use
  Company Number: GR-GLAXOSMITHKLINE-B0893677A

PATIENT
  Age: 52 Year
  Sex: Male
  Weight: 65 kg

DRUGS (7)
  1. LAPATINIB [Suspect]
     Indication: NON-SMALL CELL LUNG CANCER
     Route: 048
     Dates: start: 20130417, end: 20130512
  2. KEPPRA [Concomitant]
     Indication: CONVULSION
     Dosage: 500MG TWICE PER DAY
     Route: 048
     Dates: start: 20130430, end: 20130519
  3. DEXAMETHASONE [Concomitant]
     Indication: METASTASES TO CENTRAL NERVOUS SYSTEM
     Dosage: 4MG TWICE PER DAY
     Route: 048
     Dates: start: 20130329
  4. STILNOX [Concomitant]
     Indication: INSOMNIA
     Dosage: 10MG PER DAY
     Route: 048
     Dates: start: 20130424
  5. ZANTAC [Concomitant]
     Indication: PROPHYLAXIS
     Dosage: 150MG TWICE PER DAY
     Route: 048
     Dates: start: 20130329
  6. DOCETAXEL [Concomitant]
     Indication: NON-SMALL CELL LUNG CANCER
     Dates: start: 20121024, end: 20130218
  7. CARBOPLATIN [Concomitant]
     Indication: NON-SMALL CELL LUNG CANCER
     Dates: start: 20121024, end: 20130218

REACTIONS (1)
  - Acute myocardial infarction [Not Recovered/Not Resolved]
